FAERS Safety Report 6764015-0 (Version None)
Quarter: 2010Q2

REPORT INFORMATION
  Report Type: 
  Country: None (occurrence: None)
  Receive Date: 20100610
  Receipt Date: 20100225
  Transmission Date: 20101027
  Serious: No
  Sender: FDA-Public Use
  Company Number: US-ASTRAZENECA-2009SE28819

PATIENT
  Age: 66 Year
  Sex: Female
  Weight: 72.6 kg

DRUGS (2)
  1. FASLODEX [Suspect]
     Indication: BREAST CANCER STAGE IV
     Route: 030
     Dates: start: 20090125, end: 20100121
  2. VITAMINS [Concomitant]

REACTIONS (1)
  - PSORIASIS [None]
